FAERS Safety Report 5524831-X (Version None)
Quarter: 2007Q4

REPORT INFORMATION
  Report Type: 
  Country: None (occurrence: None)
  Receive Date: 20071126
  Receipt Date: 20071115
  Transmission Date: 20080405
  Serious: Yes (Other)
  Sender: FDA-Public Use
  Company Number: PHRM2007FR02628

PATIENT
  Age: 59 Year
  Sex: Male

DRUGS (1)
  1. MYFORTIC [Suspect]
     Indication: LIVER TRANSPLANT
     Dosage: 1440 MG/DAY
     Route: 048

REACTIONS (3)
  - ABDOMINAL DISCOMFORT [None]
  - ANAL DISCOMFORT [None]
  - INTESTINAL OBSTRUCTION [None]
